FAERS Safety Report 6194620-4 (Version None)
Quarter: 2009Q2

REPORT INFORMATION
  Report Type: 
  Country: None (occurrence: None)
  Receive Date: 20090519
  Receipt Date: 20090515
  Transmission Date: 20091009
  Serious: Yes (Hospitalization)
  Sender: FDA-Public Use
  Company Number: GB-ASTRAZENECA-2009GB01147

PATIENT
  Age: 45 Year
  Sex: Male

DRUGS (1)
  1. MEROPENEM TRIHYDRATE [Suspect]
     Route: 042
     Dates: start: 20090206, end: 20090206

REACTIONS (1)
  - ANAPHYLACTIC REACTION [None]
